FAERS Safety Report 25612330 (Version 1)
Quarter: 2025Q3

REPORT INFORMATION
  Report Type: Spontaneous
  Country: US (occurrence: None)
  Receive Date: 20250725
  Receipt Date: 20250725
  Transmission Date: 20251021
  Serious: Yes (Death)
  Sender: FDA-CTU
  Company Number: None

PATIENT
  Age: 59 Year
  Sex: Female

DRUGS (1)
  1. MAYZENT [Suspect]
     Active Substance: SIPONIMOD
     Indication: Multiple sclerosis
     Dosage: 2 MG DAILY ORAL
     Route: 048
     Dates: start: 20240115

REACTIONS (2)
  - Cerebrovascular accident [None]
  - Neoplasm malignant [None]

NARRATIVE: CASE EVENT DATE: 20250514
